FAERS Safety Report 8450190-9 (Version None)
Quarter: 2012Q2

REPORT INFORMATION
  Report Type: 
  Country: None (occurrence: None)
  Receive Date: 20120614
  Receipt Date: 20120614
  Transmission Date: 20120825
  Serious: No
  Sender: FDA-Public Use
  Company Number: None

PATIENT
  Age: 31 Year
  Sex: Female

DRUGS (1)
  1. MINOCYCLINE HCL [Suspect]
     Indication: ACNE
     Dosage: 100MG ONCE DAILY PO
     Route: 048
     Dates: start: 20120501, end: 20120612

REACTIONS (10)
  - PRURITUS [None]
  - DIZZINESS [None]
  - VISION BLURRED [None]
  - DRY EYE [None]
  - FUNGAL INFECTION [None]
  - GINGIVAL BLEEDING [None]
  - CHROMATURIA [None]
  - PHOTOPHOBIA [None]
  - SWELLING [None]
  - ABDOMINAL PAIN [None]
